FAERS Safety Report 23620276 (Version 1)
Quarter: 2024Q1

REPORT INFORMATION
  Report Type: Spontaneous
  Country: US (occurrence: None)
  Receive Date: 20240312
  Receipt Date: 20240312
  Transmission Date: 20240410
  Serious: No
  Sender: FDA-Public Use
  Company Number: 2024A046351

PATIENT
  Sex: Female

DRUGS (2)
  1. FARXIGA [Suspect]
     Active Substance: DAPAGLIFLOZIN PROPANEDIOL
     Route: 048
     Dates: start: 202310
  2. FARXIGA [Suspect]
     Active Substance: DAPAGLIFLOZIN PROPANEDIOL
     Route: 048

REACTIONS (7)
  - Fungal infection [Unknown]
  - Product use issue [Unknown]
  - Skin irritation [Unknown]
  - Urine abnormality [Unknown]
  - Back pain [Unknown]
  - Insurance issue [Unknown]
  - Pain [Unknown]
